FAERS Safety Report 6820139-0 (Version None)
Quarter: 2010Q3

REPORT INFORMATION
  Report Type: 
  Country: None (occurrence: None)
  Receive Date: 20100707
  Receipt Date: 20100705
  Transmission Date: 20110219
  Serious: Yes (Life-Threatening, Hospitalization)
  Sender: FDA-Public Use
  Company Number: GB-MERCK-1007GBR00026

PATIENT
  Age: 74 Year
  Sex: Male

DRUGS (2)
  1. ZOCOR [Suspect]
     Indication: PROPHYLAXIS
     Route: 048
     Dates: end: 20100404
  2. DANAZOL [Concomitant]
     Indication: ANAEMIA
     Route: 048
     Dates: start: 20100404

REACTIONS (2)
  - RENAL FAILURE [None]
  - RHABDOMYOLYSIS [None]
